FAERS Safety Report 9326231 (Version 2)
Quarter: 2013Q2

REPORT INFORMATION
  Report Type: Spontaneous
  Country: JP (occurrence: JP)
  Receive Date: 20130604
  Receipt Date: 20130604
  Transmission Date: 20140414
  Serious: Yes (Death)
  Sender: FDA-Public Use
  Company Number: JP-NOVOPROD-378914

PATIENT
  Age: 97 Year
  Sex: Female

DRUGS (10)
  1. TRESIBA CHU FLEXTOUCH [Suspect]
     Indication: TYPE 2 DIABETES MELLITUS
     Dosage: 8 U, SINGLE
     Route: 058
     Dates: start: 20130513, end: 20130517
  2. LEVEMIR CHU FLEXPEN [Suspect]
     Indication: TYPE 2 DIABETES MELLITUS
     Dosage: 8 U, QD
     Route: 058
     Dates: start: 20130123, end: 20130513
  3. FULCALIQ [Concomitant]
     Indication: CEREBRAL INFARCTION
     Dosage: 903 ML, UNK
     Route: 042
     Dates: start: 20130507, end: 20130520
  4. LASIX                              /00032601/ [Concomitant]
     Dosage: 100 MG, UNK
     Dates: start: 20121108, end: 20130520
  5. PRIMPERAN [Concomitant]
     Dosage: 10 MG, UNK
     Route: 042
     Dates: start: 20121108, end: 20130520
  6. HUMULIN R [Concomitant]
     Indication: TYPE 2 DIABETES MELLITUS
     Dosage: 20-25 U/DAY
     Route: 042
     Dates: start: 20121108, end: 20130520
  7. DIGILANOGEN C                      /00007201/ [Concomitant]
     Indication: CARDIAC FAILURE CHRONIC
     Dosage: 0.2 MG, QD
     Dates: start: 20130513, end: 20130513
  8. ALLOZYM [Concomitant]
     Dosage: 100 MG, QD
     Route: 048
     Dates: start: 20121127, end: 20130518
  9. ALDACTONE A [Concomitant]
     Indication: CARDIAC FAILURE CHRONIC
     Dosage: 30 MG, QD
     Dates: start: 20121108, end: 20130518
  10. TAKEPRON [Concomitant]
     Indication: GASTROOESOPHAGEAL REFLUX DISEASE
     Dosage: 30 MG, QD
     Dates: start: 20130218, end: 20130518

REACTIONS (1)
  - Pneumonia [Recovered/Resolved]
